FAERS Safety Report 6021958-3 (Version None)
Quarter: 2008Q4

REPORT INFORMATION
  Report Type: 
  Country: None (occurrence: None)
  Receive Date: 20081229
  Receipt Date: 20081217
  Transmission Date: 20090506
  Serious: Yes (Other)
  Sender: FDA-Public Use
  Company Number: DE-ROCHE-601653

PATIENT
  Sex: Female
  Weight: 70 kg

DRUGS (2)
  1. XELODA [Suspect]
     Dosage: FROM DAY 1 TO 14, FOLLOWED BY ONE WEEK REST
     Route: 048
     Dates: start: 20080901
  2. OXALIPLATIN [Suspect]
     Dosage: ON DAY 1 AND 8 OF CYCLE
     Route: 065
     Dates: start: 20080901

REACTIONS (2)
  - POLYNEUROPATHY [None]
  - RAYNAUD'S PHENOMENON [None]
